FAERS Safety Report 13583269 (Version 5)
Quarter: 2017Q2

REPORT INFORMATION
  Report Type: Spontaneous
  Country: US (occurrence: US)
  Receive Date: 20170525
  Receipt Date: 20170622
  Transmission Date: 20170830
  Serious: Yes (Disabling)
  Sender: FDA-Public Use
  Company Number: US-CELGENEUS-USA-20170500180

PATIENT
  Age: 49 Year
  Sex: Female

DRUGS (9)
  1. OTEZLA [Suspect]
     Active Substance: APREMILAST
     Indication: PSORIATIC ARTHROPATHY
     Dosage: 60 MILLIGRAM
     Route: 048
     Dates: start: 20170424
  2. QUETIAPINE FUMARATE. [Concomitant]
     Active Substance: QUETIAPINE FUMARATE
     Indication: DEPRESSION
     Route: 065
  3. DIAZEPAM. [Concomitant]
     Active Substance: DIAZEPAM
     Indication: ANXIETY
     Route: 065
  4. VENLAFAXINE [Concomitant]
     Active Substance: VENLAFAXINE HYDROCHLORIDE
     Indication: DEPRESSION
     Route: 065
  5. IBUPROFEN. [Concomitant]
     Active Substance: IBUPROFEN
     Indication: PAIN
     Dosage: 600 MILLIGRAM
     Route: 065
  6. SIMVASTATIN. [Concomitant]
     Active Substance: SIMVASTATIN
     Indication: BLOOD CHOLESTEROL INCREASED
     Route: 065
     Dates: start: 201705
  7. FLUOXETINE [Concomitant]
     Active Substance: FLUOXETINE HYDROCHLORIDE
     Indication: DEPRESSION
     Route: 065
  8. LAMOTRIGINE. [Concomitant]
     Active Substance: LAMOTRIGINE
     Indication: CONVULSION PROPHYLAXIS
     Dosage: 150MG AM, 200MG
     Route: 065
  9. OMEPRAZOLE. [Concomitant]
     Active Substance: OMEPRAZOLE
     Indication: DYSPEPSIA
     Route: 065

REACTIONS (22)
  - Pyrexia [Not Recovered/Not Resolved]
  - Pain [Recovered/Resolved]
  - Decreased appetite [Not Recovered/Not Resolved]
  - Dyspnoea [Unknown]
  - Diarrhoea [Recovered/Resolved]
  - Neck pain [Not Recovered/Not Resolved]
  - Headache [Recovered/Resolved]
  - Vision blurred [Unknown]
  - Crying [Unknown]
  - Fatigue [Unknown]
  - Dysphonia [Not Recovered/Not Resolved]
  - Cough [Not Recovered/Not Resolved]
  - Depression [Not Recovered/Not Resolved]
  - Bronchitis bacterial [Recovered/Resolved]
  - Chills [Not Recovered/Not Resolved]
  - Hyperhidrosis [Not Recovered/Not Resolved]
  - Eye irritation [Unknown]
  - Ear pain [Unknown]
  - Pneumonia [Unknown]
  - Back pain [Not Recovered/Not Resolved]
  - Throat irritation [Unknown]
  - Viral upper respiratory tract infection [Not Recovered/Not Resolved]

NARRATIVE: CASE EVENT DATE: 20170424
